FAERS Safety Report 4667966-6 (Version None)
Quarter: 2005Q2

REPORT INFORMATION
  Report Type: 
  Country: None (occurrence: None)
  Receive Date: 20050520
  Receipt Date: 20050516
  Transmission Date: 20051028
  Serious: Yes (Life-Threatening, Disabling)
  Sender: FDA-Public Use
  Company Number: 2005GB00954

PATIENT
  Age: 28 Year
  Sex: Female

DRUGS (11)
  1. ZOMIG [Suspect]
     Indication: MIGRAINE
     Route: 045
     Dates: start: 20050211, end: 20050426
  2. PIZOTIFEN [Concomitant]
     Route: 065
  3. DALACIN T [Concomitant]
     Route: 061
  4. TERBUTALINE [Concomitant]
     Dosage: PRN
     Route: 055
  5. DOMPERAMOL [Concomitant]
     Dosage: 500MG/10MG X2 QDS
     Route: 065
  6. MELOXICAM [Concomitant]
     Route: 065
  7. AMITRIPTYLINE [Concomitant]
     Dosage: 1-2 AT NIGHT
     Route: 065
  8. CO-CODAMOL [Concomitant]
     Dosage: 30MG/500MG 1-2 QDS PRN
     Route: 065
  9. DEPO-PROVERA [Concomitant]
     Dosage: AS DIRECTED
     Route: 065
  10. CEFACLOR [Concomitant]
  11. BEGRIVAC VACCINE [Concomitant]

REACTIONS (2)
  - ANAPHYLACTIC SHOCK [None]
  - UPPER RESPIRATORY TRACT INFECTION [None]
